FAERS Safety Report 6588791-5 (Version None)
Quarter: 2010Q1

REPORT INFORMATION
  Report Type: 
  Country: None (occurrence: None)
  Receive Date: 20100218
  Receipt Date: 20100208
  Transmission Date: 20100710
  Serious: Yes (Death)
  Sender: FDA-Public Use
  Company Number: US-GENZYME-CLOF-1000851

PATIENT
  Sex: Male
  Weight: 90.249 kg

DRUGS (9)
  1. CLOLAR [Suspect]
     Indication: MYELODYSPLASTIC SYNDROME
     Dosage: 9 MG, QDX5
     Route: 042
     Dates: start: 20100125, end: 20100129
  2. LEVAQUIN [Concomitant]
     Indication: INFECTION PROPHYLAXIS
     Dosage: 500 MG, QD
     Route: 048
     Dates: start: 20100129, end: 20100208
  3. SYNTHROID [Concomitant]
     Indication: HYPOTHYROIDISM
     Dosage: 125 MCG, QD
     Route: 048
  4. TOPROL-XL [Concomitant]
     Indication: HYPERTENSION
     Dosage: 50 MG, QD
     Route: 048
  5. VYTORIN [Concomitant]
     Indication: HYPERLIPIDAEMIA
     Dosage: 1 UNK, QD, 10/20
     Route: 048
  6. PROTONIX [Concomitant]
     Indication: GASTROOESOPHAGEAL REFLUX DISEASE
     Dosage: 40 MG, QD
     Route: 048
     Dates: start: 20091204, end: 20100205
  7. PROTONIX [Concomitant]
     Dosage: 40 MG, Q12HR
     Route: 042
     Dates: start: 20100205
  8. DIOVAN [Concomitant]
     Indication: DRUG USE FOR UNKNOWN INDICATION
  9. AMBIEN [Concomitant]
     Indication: INSOMNIA
     Dosage: 10 MG, QD
     Route: 048
     Dates: start: 20090720

REACTIONS (1)
  - THROMBOCYTOPENIA [None]
